FAERS Safety Report 23764757 (Version 1)
Quarter: 2024Q2

REPORT INFORMATION
  Report Type: Spontaneous
  Country: CA (occurrence: CA)
  Receive Date: 20240420
  Receipt Date: 20240420
  Transmission Date: 20240715
  Serious: Yes (Life-Threatening, Hospitalization)
  Sender: FDA-Public Use
  Company Number: CA-TEVA-VS-3183991

PATIENT
  Age: 14 Year
  Sex: Male

DRUGS (6)
  1. ETOPOSIDE [Suspect]
     Active Substance: ETOPOSIDE
     Indication: Chemotherapy
     Dosage: DOSE FORM: NOT SPECIFIED
     Route: 065
  2. PREDNISONE [Suspect]
     Active Substance: PREDNISONE
     Indication: Chemotherapy
     Dosage: DOSE FORM: NOT SPECIFIED
     Route: 065
  3. VINCRISTINE SULFATE [Suspect]
     Active Substance: VINCRISTINE SULFATE
     Indication: Chemotherapy
     Dosage: DOSE FORM: NOT SPECIFIED
     Route: 065
  4. ADRIAMYCIN [Suspect]
     Active Substance: DOXORUBICIN HYDROCHLORIDE
     Indication: Chemotherapy
     Dosage: DOSE FORM: NOT SPECIFIED
     Route: 065
  5. BLEOMYCIN SULFATE [Suspect]
     Active Substance: BLEOMYCIN SULFATE
     Indication: Chemotherapy
     Dosage: BLEOMYCIN SULPHATE FOR INJECTION USP
     Route: 065
  6. CYCLOPHOSPHAMIDE [Suspect]
     Active Substance: CYCLOPHOSPHAMIDE
     Indication: Chemotherapy
     Dosage: DOSE FORM: NOT SPECIFIED
     Route: 065

REACTIONS (1)
  - Febrile neutropenia [Recovered/Resolved]
